FAERS Safety Report 4822183-1 (Version None)
Quarter: 2005Q4

REPORT INFORMATION
  Report Type: 
  Country: None (occurrence: None)
  Receive Date: 20051103
  Receipt Date: 20051020
  Transmission Date: 20060501
  Serious: Yes (Death, Hospitalization)
  Sender: FDA-Public Use
  Company Number: US-2005-007427

PATIENT
  Age: 70 Year
  Sex: Male

DRUGS (9)
  1. CAMPATH [Suspect]
     Indication: CHRONIC LYMPHOCYTIC LEUKAEMIA STAGE 4
     Dosage: 30 MG, 3X/WEEK (M,W,F), INTRAVENOUS
     Route: 042
     Dates: start: 20030401, end: 20030101
  2. SALINE [Concomitant]
  3. RABEPRAZOLE (REBAPRAZOLE) [Concomitant]
  4. TERAZOSIN (TERAZOSIN) [Concomitant]
  5. SEPTRA DS [Concomitant]
  6. ACYCLOVIR [Concomitant]
  7. FLUTICASONE ^GLAXO^  (FLUTICASONE PROPIONATE)NOSE SPRAY [Concomitant]
  8. DOCUSATE (DOCUSATE) [Concomitant]
  9. EPOGEN [Concomitant]

REACTIONS (10)
  - CHRONIC LYMPHOCYTIC LEUKAEMIA [None]
  - CONFUSIONAL STATE [None]
  - FATIGUE [None]
  - INAPPROPRIATE ANTIDIURETIC HORMONE SECRETION [None]
  - INFERIOR VENA CAVAL OCCLUSION [None]
  - LYMPHADENOPATHY [None]
  - LYMPHOEDEMA [None]
  - MALIGNANT NEOPLASM PROGRESSION [None]
  - NAUSEA [None]
  - OEDEMA PERIPHERAL [None]
